FAERS Safety Report 8207759-6 (Version None)
Quarter: 2012Q1

REPORT INFORMATION
  Report Type: 
  Country: None (occurrence: None)
  Receive Date: 20120313
  Receipt Date: 20120313
  Transmission Date: 20120608
  Serious: Yes (Other)
  Sender: FDA-Public Use
  Company Number: None

PATIENT
  Sex: Female

DRUGS (1)
  1. FLUOXETINE [Suspect]
     Indication: DYSTHYMIC DISORDER
     Dosage: 20MG QD ORALLY
     Route: 048
     Dates: start: 20070529, end: 20080908

REACTIONS (2)
  - PRODUCT SUBSTITUTION ISSUE [None]
  - MIGRAINE [None]
